FAERS Safety Report 9414578 (Version 1)
Quarter: 2013Q3

REPORT INFORMATION
  Report Type: Spontaneous
  Country: US (occurrence: US)
  Receive Date: 20130723
  Receipt Date: 20130723
  Transmission Date: 20140515
  Serious: Yes (Other)
  Sender: FDA-Public Use
  Company Number: US-TEVA-419706USA

PATIENT
  Age: 89 Year
  Sex: Female

DRUGS (8)
  1. AMLODIPINE [Suspect]
     Indication: HYPERTENSION
     Dosage: 10MG DAILY
     Route: 048
     Dates: start: 20060830
  2. FOSINOPRIL [Suspect]
     Indication: HYPERTENSION
     Dosage: 40MG DAILY
     Route: 048
     Dates: start: 20060726
  3. METOPROLOL [Suspect]
     Indication: HYPERTENSION
     Dosage: 150MG DAILY
     Route: 048
     Dates: start: 20080227
  4. DOXAZOSIN [Suspect]
     Indication: HYPERTENSION
     Dosage: 8MG DAILY
     Route: 048
     Dates: start: 20080616
  5. SPIRONOLACTONE [Suspect]
     Indication: HYPERTENSION
     Route: 048
     Dates: start: 20081015
  6. OLMESARTAN MEDOXOMIL, HYDROCHLOROTHIAZIDE [Suspect]
     Indication: HYPERTENSION
     Dosage: 40MG OLMESARTAN MEDOXOMIL/20MG HYDROCHLOROTHIAZIDE DAILY
     Route: 048
     Dates: start: 20090204
  7. ATORVASTATIN [Concomitant]
     Dosage: 20MG DAILY
     Route: 048
     Dates: start: 20050504
  8. GLIPIZIDE [Concomitant]
     Dosage: 10MG DAILY, EXTENDED-RELEASE
     Route: 048
     Dates: start: 20070117

REACTIONS (3)
  - Renal failure [Recovering/Resolving]
  - Orthostatic hypotension [Recovered/Resolved]
  - Hyperkalaemia [Recovered/Resolved]
